FAERS Safety Report 19122849 (Version 2)
Quarter: 2021Q2

REPORT INFORMATION
  Report Type: Report from Study
  Country: IT (occurrence: IT)
  Receive Date: 20210412
  Receipt Date: 20210414
  Transmission Date: 20210717
  Serious: Yes (Other)
  Sender: FDA-Public Use
  Company Number: IT-SHIONOGI, INC-2021000119

PATIENT

DRUGS (29)
  1. FETROJA [Suspect]
     Active Substance: CEFIDEROCOL SULFATE TOSYLATE
     Indication: MULTIPLE-DRUG RESISTANCE
  2. METFORMINA [Concomitant]
     Active Substance: METFORMIN HYDROCHLORIDE
     Indication: PRODUCT USED FOR UNKNOWN INDICATION
     Dosage: 1/2 TABLET IN THE MORNING AND IN THE EVENING
     Route: 065
     Dates: start: 201902
  3. ALLOPURINOLO [Concomitant]
     Active Substance: ALLOPURINOL
     Indication: PRODUCT USED FOR UNKNOWN INDICATION
     Dosage: 300 MG, ONE TABLET ONCE A DAY
     Route: 065
     Dates: start: 201902
  4. APROVEL [Concomitant]
     Active Substance: IRBESARTAN
     Indication: PRODUCT USED FOR UNKNOWN INDICATION
     Dosage: ONE TABLET ONCE A DAY (TO TAKE ONLY IF BLOOD PRESSURE }130/80 MH) (SUSPENDED DURING THE HOT SEASON)
     Route: 065
  5. CALCIO CARBONATO 1000 [Concomitant]
     Indication: PRODUCT USED FOR UNKNOWN INDICATION
     Dosage: ONE TABLET ONCE A DAY (SUSPENDED)
     Route: 065
  6. ATENOLOLO [Concomitant]
     Active Substance: ATENOLOL
     Indication: PRODUCT USED FOR UNKNOWN INDICATION
     Dosage: 1/4 TABLET IN THE MORNING AND 1/2 TABLET IN THE EVENING
     Route: 065
     Dates: start: 201902
  7. LANSOPRAZOLO [Concomitant]
     Active Substance: LANSOPRAZOLE
     Indication: PRODUCT USED FOR UNKNOWN INDICATION
     Dosage: 30 MG, ONE TABLET IN THE MORNING BEFORE BREAKFAST
     Route: 065
     Dates: start: 201902
  8. CARDIRENE [Concomitant]
     Active Substance: ASPIRIN DL-LYSINE
     Indication: PRODUCT USED FOR UNKNOWN INDICATION
     Dosage: 75 MG, ONE TABLET AFTER LUNCH
     Route: 065
     Dates: start: 201902
  9. LIXIANA [Concomitant]
     Active Substance: EDOXABAN TOSYLATE
     Indication: PRODUCT USED FOR UNKNOWN INDICATION
     Dosage: 60 MG, ONE TABLET
     Route: 065
     Dates: start: 201902
  10. CLISTERE EVACUATIVO [Concomitant]
     Indication: PRODUCT USED FOR UNKNOWN INDICATION
     Dosage: EVACUATIVE ENEMA IF HE DOESN^T EVACUATE AFTER 3 DAYS
     Route: 065
  11. VITAMINA B12 [Concomitant]
     Indication: PRODUCT USED FOR UNKNOWN INDICATION
     Dosage: ONE BOTTLE TO DRINK ON MONDAY, WEDNESDAY AND FRIDAY
     Route: 048
  12. FETROJA [Suspect]
     Active Substance: CEFIDEROCOL SULFATE TOSYLATE
     Indication: BACTERIAL INFECTION
  13. DARATUMUMAB [Concomitant]
     Active Substance: DARATUMUMAB
     Indication: PLASMA CELL MYELOMA
     Dosage: ONCE A MONTH
     Route: 042
     Dates: start: 20190311
  14. SELG ESSE 250 [Concomitant]
     Indication: PRODUCT USED FOR UNKNOWN INDICATION
     Dosage: ONE SACHET TO DISSOLVE IN 500 ML OF WATER, TO DRINK IN 30 MIN IF THERE IS CONSTIPATION
     Route: 048
  15. EPOETIN ZETA [Concomitant]
     Active Substance: ERYTHROPOIETIN
     Indication: PRODUCT USED FOR UNKNOWN INDICATION
     Dosage: 30.000, ONE BOTTLE PER WEEK
     Route: 065
  16. VALACICLOVIR [Concomitant]
     Active Substance: VALACYCLOVIR HYDROCHLORIDE
     Indication: PRODUCT USED FOR UNKNOWN INDICATION
     Dosage: 1 GR, ONE TABLET ONCE A DAY
     Route: 065
     Dates: start: 201902
  17. FOLINA [FOLIC ACID] [Concomitant]
     Active Substance: FOLIC ACID
     Indication: PRODUCT USED FOR UNKNOWN INDICATION
     Dosage: ONE TABLET PER DAY
     Route: 065
  18. LENALIDOMIDE [Concomitant]
     Active Substance: LENALIDOMIDE
     Indication: PLASMA CELL MYELOMA
     Dosage: ONE TABLET IN THE EVENTING FOR 21 DAYS
     Route: 065
     Dates: start: 20200824
  19. FETROJA [Suspect]
     Active Substance: CEFIDEROCOL SULFATE TOSYLATE
     Indication: SKIN ULCER
     Dosage: 2 G, TID
     Route: 042
     Dates: start: 20210324, end: 20210327
  20. GABAPENTIN. [Concomitant]
     Active Substance: GABAPENTIN
     Indication: PRODUCT USED FOR UNKNOWN INDICATION
     Dosage: ONE TABLET IN THE MORNING AND ONE TABLET IN THE EVENING
     Route: 065
  21. FETROJA [Suspect]
     Active Substance: CEFIDEROCOL SULFATE TOSYLATE
     Indication: PSEUDOMONAS INFECTION
  22. AMIKACINA [AMIKACIN] [Suspect]
     Active Substance: AMIKACIN
     Indication: PRODUCT USED FOR UNKNOWN INDICATION
     Dosage: 1 G/DIE
     Route: 042
     Dates: start: 20210323
  23. DESAMETASONE [Concomitant]
     Active Substance: DEXAMETHASONE
     Indication: PLASMA CELL MYELOMA
     Dosage: ONE BOTTLE TO DRINK AFTER BREAKFAST ONLY ON 11MAR2021
     Route: 048
     Dates: start: 20210311, end: 20210311
  24. DURONITRIN [Concomitant]
     Active Substance: ISOSORBIDE MONONITRATE
     Indication: PRODUCT USED FOR UNKNOWN INDICATION
     Dosage: 1/2 TABLET IN THE MORNING
     Route: 065
     Dates: start: 201902
  25. BACTRIM [Concomitant]
     Active Substance: SULFAMETHOXAZOLE\TRIMETHOPRIM
     Indication: PRODUCT USED FOR UNKNOWN INDICATION
     Dosage: ONE TABLET IN THE MORNING AND ONE TABLET IN THE EVENING EVERY TUESDAY AND FRIDAY
     Route: 065
     Dates: start: 20210311
  26. LASIX [Concomitant]
     Active Substance: FUROSEMIDE
     Indication: PRODUCT USED FOR UNKNOWN INDICATION
     Dosage: ONE TABLET AT THE MORNING AND ONE TABLET AT LUNCH
     Route: 065
  27. LUVION [CANRENONE] [Concomitant]
     Active Substance: CANRENONE
     Indication: PRODUCT USED FOR UNKNOWN INDICATION
     Dosage: ONE CAPSULE IN THE AFTERNOON
     Route: 065
  28. LEVOPRAID [LEVOSULPIRIDE] [Concomitant]
     Active Substance: LEVOSULPIRIDE
     Indication: NAUSEA
     Dosage: 20 DROPS IF NAUSEA
     Route: 065
  29. OLIO VASELINA [Concomitant]
     Indication: PRODUCT USED FOR UNKNOWN INDICATION
     Dosage: ONE TABLESPOON BEFORE MEALS (TO BE INCREASED TO TID THE FIRST WEEK OF THERAPY)
     Route: 065

REACTIONS (6)
  - Disorientation [Recovered/Resolved]
  - Overdose [Unknown]
  - Altered state of consciousness [Recovered/Resolved]
  - Encephalopathy [Recovered/Resolved]
  - Blood creatinine increased [Recovered/Resolved]
  - Somnolence [Recovered/Resolved]

NARRATIVE: CASE EVENT DATE: 20210325
